FAERS Safety Report 12429091 (Version 2)
Quarter: 2016Q2

REPORT INFORMATION
  Report Type: Report from Study
  Country: US (occurrence: US)
  Receive Date: 20160602
  Receipt Date: 20160607
  Transmission Date: 20160815
  Serious: Yes (Death)
  Sender: FDA-Public Use
  Company Number: US-ASTELLAS-2016US021389

PATIENT
  Sex: Female

DRUGS (2)
  1. ERLOTINIB [Suspect]
     Active Substance: ERLOTINIB
     Indication: MALIGNANT NEOPLASM OF UNKNOWN PRIMARY SITE
  2. ERLOTINIB [Suspect]
     Active Substance: ERLOTINIB
     Indication: CHOLANGIOCARCINOMA
     Route: 065
     Dates: start: 20160504

REACTIONS (1)
  - Death [Fatal]
